FAERS Safety Report 9830231 (Version 3)
Quarter: 2014Q1

REPORT INFORMATION
  Report Type: Spontaneous
  Country: GB (occurrence: GB)
  Receive Date: 20140120
  Receipt Date: 20140210
  Transmission Date: 20141002
  Serious: Yes (Death, Hospitalization)
  Sender: FDA-Public Use
  Company Number: GB-SA-2014SA006242

PATIENT
  Age: 62 Year
  Sex: Female

DRUGS (20)
  1. DOCETAXEL [Suspect]
     Indication: BREAST CANCER
     Route: 042
     Dates: start: 20130910, end: 20131217
  2. DOCETAXEL [Suspect]
     Indication: BREAST CANCER
     Route: 042
     Dates: end: 20131231
  3. PERTUZUMAB [Suspect]
     Indication: BREAST CANCER
     Route: 042
     Dates: start: 20130910
  4. PERTUZUMAB [Suspect]
     Indication: BREAST CANCER
     Route: 042
     Dates: end: 20131217
  5. PERTUZUMAB [Suspect]
     Indication: BREAST CANCER
     Route: 042
     Dates: end: 20131231
  6. TRASTUZUMAB [Suspect]
     Indication: BREAST CANCER
     Route: 042
     Dates: start: 20130910
  7. TRASTUZUMAB [Suspect]
     Indication: BREAST CANCER
     Route: 042
     Dates: start: 20131002, end: 20131217
  8. TRASTUZUMAB [Suspect]
     Indication: BREAST CANCER
     Route: 065
     Dates: end: 20131231
  9. OXYGEN [Concomitant]
     Dates: start: 20130814
  10. PREDNISOLONE [Concomitant]
     Dates: start: 20130904, end: 20131002
  11. PREDNISOLONE [Concomitant]
     Dates: start: 20131003, end: 20131017
  12. PREDNISOLONE [Concomitant]
     Dates: start: 20131017, end: 20131031
  13. AMLODIPINE [Concomitant]
     Indication: BLOOD PRESSURE
     Dates: start: 2010
  14. CALCIUM CARBONATE/COLECALCIFEROL [Concomitant]
     Indication: BONE DISORDER
     Dates: start: 20130814
  15. PARACETAMOL [Concomitant]
     Dates: start: 20130814, end: 20130916
  16. ZOTON [Concomitant]
     Dates: start: 20131015
  17. AMOXICILLIN TRIHYDRATE AND SODIUM/CLAVULANIC ACID POTASSIUM [Concomitant]
     Dates: start: 20131008, end: 20131014
  18. CHLORPHENAMINE MALEATE [Concomitant]
     Dates: start: 20130910, end: 20130910
  19. CHLORPHENAMINE MALEATE [Concomitant]
     Dates: start: 20131001, end: 20131001
  20. GAVISCON [Concomitant]

REACTIONS (1)
  - Death [Fatal]
